FAERS Safety Report 9295941 (Version 1)
Quarter: 2013Q2

REPORT INFORMATION
  Report Type: Spontaneous
  Country: US (occurrence: None)
  Receive Date: 20130516
  Receipt Date: 20130516
  Transmission Date: 20140414
  Serious: Yes (Hospitalization)
  Sender: FDA-Public Use
  Company Number: None

PATIENT
  Age: 56 Year
  Sex: Male

DRUGS (3)
  1. PEGINTRON [Suspect]
     Indication: HEPATITIS C
     Dosage: ONCE PER WEEK
     Route: 058
     Dates: start: 20130412, end: 20130501
  2. VICTRELIS [Suspect]
     Indication: HEPATITIS C
     Route: 048
     Dates: start: 20130112, end: 20130501
  3. RIBASPHERE [Concomitant]

REACTIONS (2)
  - Platelet count decreased [None]
  - Volume blood decreased [None]
